FAERS Safety Report 19406052 (Version 2)
Quarter: 2021Q3

REPORT INFORMATION
  Report Type: Spontaneous
  Country: US (occurrence: US)
  Receive Date: 20210611
  Receipt Date: 20210811
  Transmission Date: 20211014
  Serious: Yes (Hospitalization, Other)
  Sender: FDA-Public Use
  Company Number: US-BAYER-2021-156352

PATIENT
  Sex: Male

DRUGS (4)
  1. KOGENATE FS [Suspect]
     Active Substance: ANTIHEMOPHILIC FACTOR, HUMAN RECOMBINANT
     Indication: FACTOR VIII DEFICIENCY
     Dosage: 3257 U, PRN, DAILY; TOTAL DOSE OF 6163 UNITS (2906+3257)
     Route: 042
     Dates: start: 20210514
  2. KOGENATE FS [Suspect]
     Active Substance: ANTIHEMOPHILIC FACTOR, HUMAN RECOMBINANT
     Indication: FACTOR VIII DEFICIENCY
     Dosage: 6200 IU (5580?6820), TID, FOR THE ABDOMINAL BLEED TREATMENT
     Route: 042
  3. KOGENATE FS [Suspect]
     Active Substance: ANTIHEMOPHILIC FACTOR, HUMAN RECOMBINANT
     Indication: FACTOR VIII DEFICIENCY
     Dosage: 2906 U, PRN, DAILY; TOTAL DOSE OF 6163 UNITS (2906+3257)
     Route: 042
     Dates: start: 20210514
  4. KOGENATE FS [Suspect]
     Active Substance: ANTIHEMOPHILIC FACTOR, HUMAN RECOMBINANT
     Indication: FACTOR VIII DEFICIENCY
     Dosage: 5 DF, PRN; FOR HIP BLEEDS
     Route: 042

REACTIONS (2)
  - Haemarthrosis [Recovered/Resolved]
  - Intra-abdominal haemorrhage [None]
